FAERS Safety Report 10055682 (Version 1)
Quarter: 2014Q2

REPORT INFORMATION
  Report Type: Spontaneous
  Country: US (occurrence: None)
  Receive Date: 20140402
  Receipt Date: 20140402
  Transmission Date: 20141212
  Serious: Yes (Other)
  Sender: FDA-Public Use
  Company Number: None

PATIENT
  Age: 73 Year
  Sex: Female
  Weight: 72.58 kg

DRUGS (1)
  1. HYDROXYCHLOROQUINE [Suspect]
     Indication: ARTHRALGIA
     Dosage: 2 PILLS, ONCE DAILY, TAKEN BY MOUTH
     Route: 048
     Dates: start: 20140314, end: 20140331

REACTIONS (11)
  - Dizziness [None]
  - Fatigue [None]
  - Nausea [None]
  - Joint swelling [None]
  - Abdominal pain [None]
  - Anxiety [None]
  - Panic attack [None]
  - Depression [None]
  - Hyperhidrosis [None]
  - Chills [None]
  - Malaise [None]
